FAERS Safety Report 7441698-3 (Version None)
Quarter: 2011Q2

REPORT INFORMATION
  Report Type: 
  Country: None (occurrence: None)
  Receive Date: 20110428
  Receipt Date: 20101230
  Transmission Date: 20111010
  Serious: No
  Sender: FDA-Public Use
  Company Number: A0902061A

PATIENT
  Age: 41 Year
  Sex: Female

DRUGS (2)
  1. ASMANEX TWISTHALER [Concomitant]
  2. SEREVENT [Suspect]
     Indication: ASTHMA
     Route: 065

REACTIONS (1)
  - DRUG INEFFECTIVE [None]
